FAERS Safety Report 6498419-0 (Version None)
Quarter: 2009Q4

REPORT INFORMATION
  Report Type: 
  Country: None (occurrence: None)
  Receive Date: 20091127
  Receipt Date: 20090817
  Transmission Date: 20100525
  Serious: Yes (Hospitalization)
  Sender: FDA-Public Use
  Company Number: 290591

PATIENT
  Age: 24 Year
  Sex: Female

DRUGS (1)
  1. NOVOLOG [Suspect]
     Indication: TYPE 1 DIABETES MELLITUS
     Dosage: SUBCUTAN.-PUMP
     Route: 058
     Dates: start: 20030101

REACTIONS (3)
  - CELLULITIS [None]
  - CHEST PAIN [None]
  - DIABETIC KETOACIDOSIS [None]
